FAERS Safety Report 14619730 (Version 1)
Quarter: 2018Q1

REPORT INFORMATION
  Report Type: Spontaneous
  Country: US (occurrence: US)
  Receive Date: 20180309
  Receipt Date: 20180309
  Transmission Date: 20180509
  Serious: Yes (Other)
  Sender: FDA-Public Use
  Company Number: None

PATIENT
  Age: 12 Year
  Sex: Male
  Weight: 47.25 kg

DRUGS (4)
  1. SINGULAIR [Concomitant]
     Active Substance: MONTELUKAST SODIUM
  2. ALBUTEROL INHALER [Concomitant]
     Active Substance: ALBUTEROL
  3. CLARITIN [Concomitant]
     Active Substance: LORATADINE
  4. OSELTAMIVIR PHOSPHATE. [Suspect]
     Active Substance: OSELTAMIVIR PHOSPHATE
     Indication: INFLUENZA
     Dosage: ?          QUANTITY:12.5 ML^S;?
     Route: 048
     Dates: start: 20180305, end: 20180305

REACTIONS (6)
  - Hallucination [None]
  - Intentional self-injury [None]
  - Poor quality sleep [None]
  - Restlessness [None]
  - Delusion [None]
  - Aggression [None]

NARRATIVE: CASE EVENT DATE: 20180305
